FAERS Safety Report 23774075 (Version 1)
Quarter: 2024Q2

REPORT INFORMATION
  Report Type: Spontaneous
  Country: US (occurrence: US)
  Receive Date: 20240423
  Receipt Date: 20240423
  Transmission Date: 20240716
  Serious: No
  Sender: FDA-Public Use
  Company Number: US-ANIPHARMA-2023-US-035610

PATIENT
  Age: 69 Year
  Sex: Male

DRUGS (1)
  1. INDERAL XL [Suspect]
     Active Substance: PROPRANOLOL HYDROCHLORIDE
     Indication: Product used for unknown indication
     Dosage: UNKNOWN
     Route: 048
     Dates: start: 202310

REACTIONS (2)
  - Somnolence [Unknown]
  - Tinnitus [Unknown]

NARRATIVE: CASE EVENT DATE: 20231001
